FAERS Safety Report 8445463-X (Version None)
Quarter: 2012Q2

REPORT INFORMATION
  Report Type: 
  Country: None (occurrence: None)
  Receive Date: 20120618
  Receipt Date: 20120214
  Transmission Date: 20120825
  Serious: No
  Sender: FDA-Public Use
  Company Number: US-TEVA-322500USA

PATIENT
  Sex: Female

DRUGS (1)
  1. FENTORA [Suspect]
     Route: 002
     Dates: start: 20120101

REACTIONS (3)
  - ACCIDENTAL OVERDOSE [None]
  - NAUSEA [None]
  - DIZZINESS [None]
